FAERS Safety Report 21012612 (Version 1)
Quarter: 2022Q2

REPORT INFORMATION
  Report Type: Report from Study
  Country: NZ (occurrence: NZ)
  Receive Date: 20220627
  Receipt Date: 20220627
  Transmission Date: 20220721
  Serious: Yes (Hospitalization)
  Sender: FDA-Public Use
  Company Number: NZ-CELGENE-NZL-20210404803

PATIENT
  Age: 53 Year
  Sex: Male

DRUGS (10)
  1. CHOLECALCIFEROL [Concomitant]
     Active Substance: CHOLECALCIFEROL
     Indication: Supplementation therapy
     Route: 048
     Dates: start: 20140404
  2. BACLOFEN [Concomitant]
     Active Substance: BACLOFEN
     Indication: Muscle spasms
     Route: 048
     Dates: start: 20141028
  3. Redseal Mens Multivitamin [Concomitant]
     Indication: Supplementation therapy
     Dosage: DAILY DOSE : 1 TABLET?UNIT DOSE : 1 TABLET
     Route: 048
     Dates: start: 20160910
  4. SYMBICORT [Concomitant]
     Active Substance: BUDESONIDE\FORMOTEROL FUMARATE DIHYDRATE
     Indication: Asthma
     Dosage: 160/4.5 MCG
     Route: 045
     Dates: start: 20170620
  5. LOPERAMIDE [Concomitant]
     Active Substance: LOPERAMIDE
     Indication: Diarrhoea
     Route: 048
     Dates: start: 20190301
  6. DALFAMPRIDINE [Concomitant]
     Active Substance: DALFAMPRIDINE
     Indication: Mobility decreased
     Route: 048
     Dates: start: 20190301
  7. Emtricitabine 200 mg + Tenofovir 245 mg [Concomitant]
     Indication: Prophylaxis
     Dosage: 200+245 MG
     Route: 048
     Dates: start: 20190809
  8. CETIRIZINE [Concomitant]
     Active Substance: CETIRIZINE HYDROCHLORIDE
     Indication: Seasonal allergy
     Route: 048
     Dates: start: 20200129
  9. ZOPICLONE [Concomitant]
     Active Substance: ZOPICLONE
     Indication: Insomnia
     Dosage: FREQUENCY TEXT: AS NEEDED
     Route: 048
     Dates: start: 20200129
  10. Budesonide+Eformoterol [Concomitant]
     Indication: Asthma
     Dosage: 200/6 MCG
     Route: 065
     Dates: start: 20200129

REACTIONS (1)
  - Staphylococcal infection [Recovered/Resolved]

NARRATIVE: CASE EVENT DATE: 20210216
